FAERS Safety Report 18067915 (Version 1)
Quarter: 2020Q3

REPORT INFORMATION
  Report Type: Spontaneous
  Country: US (occurrence: US)
  Receive Date: 20200724
  Receipt Date: 20200724
  Transmission Date: 20201103
  Serious: Yes (Other)
  Sender: FDA-Public Use
  Company Number: US-VIFOR (INTERNATIONAL) INC.-VIT-2020-07981

PATIENT
  Sex: Female

DRUGS (21)
  1. ABILIFY [Concomitant]
     Active Substance: ARIPIPRAZOLE
  2. BENAZEPRIL AND HYDROCHLOROTHIAZIDE [Concomitant]
     Active Substance: BENAZEPRIL HYDROCHLORIDE\HYDROCHLOROTHIAZIDE
  3. VITAMIN?D [Concomitant]
     Active Substance: VITAMIN D NOS
  4. LANTUS [Concomitant]
     Active Substance: INSULIN GLARGINE
     Dosage: 2 UNITS AT LUNCH AND 2 UNITS AT DINNER
  5. CRESTOR [Concomitant]
     Active Substance: ROSUVASTATIN CALCIUM
  6. ESTROGEN [Concomitant]
     Active Substance: ESTROGENS
  7. MIRTAZAPINE. [Concomitant]
     Active Substance: MIRTAZAPINE
  8. MIRALAX [Concomitant]
     Active Substance: POLYETHYLENE GLYCOL 3350
     Indication: CONSTIPATION
     Dosage: 1/2 CAPFUL DAILY PROACTIVELY
  9. PEPCID [Concomitant]
     Active Substance: FAMOTIDINE
  10. VELTASSA [Suspect]
     Active Substance: PATIROMER
     Indication: BLOOD POTASSIUM INCREASED
     Dates: start: 202006
  11. LASIX [Concomitant]
     Active Substance: FUROSEMIDE
  12. TYLENOL [Concomitant]
     Active Substance: ACETAMINOPHEN
  13. NORVASC [Concomitant]
     Active Substance: AMLODIPINE BESYLATE
  14. AMOXICILLIN. [Concomitant]
     Active Substance: AMOXICILLIN
     Indication: DENTAL CARE
  15. LASIX [Concomitant]
     Active Substance: FUROSEMIDE
     Indication: RENAL IMPAIRMENT
  16. GABAPENTIN. [Concomitant]
     Active Substance: GABAPENTIN
  17. NITROGLYCERIN. [Concomitant]
     Active Substance: NITROGLYCERIN
  18. ASPIRIN. [Concomitant]
     Active Substance: ASPIRIN
  19. COREG [Concomitant]
     Active Substance: CARVEDILOL
     Dosage: 2 TABLETS TWICE DAILY
  20. FLONASE [Concomitant]
     Active Substance: FLUTICASONE PROPIONATE
  21. ZOLOFT [Concomitant]
     Active Substance: SERTRALINE HYDROCHLORIDE

REACTIONS (2)
  - Fluid retention [Unknown]
  - Renal failure [Not Recovered/Not Resolved]

NARRATIVE: CASE EVENT DATE: 2020
